FAERS Safety Report 26089067 (Version 1)
Quarter: 2025Q4

REPORT INFORMATION
  Report Type: Spontaneous
  Country: US (occurrence: US)
  Receive Date: 20251125
  Receipt Date: 20251125
  Transmission Date: 20260118
  Serious: No
  Sender: SANOFI AVENTIS
  Company Number: US-SA-2025SA351389

PATIENT
  Age: 44 Year
  Sex: Female

DRUGS (1)
  1. DUPIXENT [Suspect]
     Active Substance: DUPILUMAB

REACTIONS (5)
  - Pruritus [Recovered/Resolved]
  - Erythema [Unknown]
  - Skin burning sensation [Recovered/Resolved]
  - Skin exfoliation [Unknown]
  - Hypersensitivity [Unknown]
